FAERS Safety Report 5908596-5 (Version None)
Quarter: 2008Q4

REPORT INFORMATION
  Report Type: 
  Country: None (occurrence: None)
  Receive Date: 20081001
  Receipt Date: 20080924
  Transmission Date: 20090506
  Serious: Yes (Death, Disabling)
  Sender: FDA-Public Use
  Company Number: OSCN-PR-0704S-0156

PATIENT
  Age: 40 Year
  Sex: Female

DRUGS (2)
  1. OMNISCAN [Suspect]
     Indication: DRUG USE FOR UNKNOWN INDICATION
     Dosage: SINGLE DOSE, I.V.
     Route: 042
     Dates: start: 20010812, end: 20010812
  2. EPOGEN [Concomitant]

REACTIONS (10)
  - ABASIA [None]
  - ACQUIRED CLAW TOE [None]
  - BLOOD PRESSURE DECREASED [None]
  - CONJUNCTIVAL HYPERAEMIA [None]
  - INSOMNIA [None]
  - MOVEMENT DISORDER [None]
  - NEPHROGENIC SYSTEMIC FIBROSIS [None]
  - OCULAR ICTERUS [None]
  - PAIN [None]
  - SKIN HYPERPIGMENTATION [None]
